FAERS Safety Report 12530860 (Version 1)
Quarter: 2016Q3

REPORT INFORMATION
  Report Type: Spontaneous
  Country: US (occurrence: None)
  Receive Date: 20160705
  Receipt Date: 20160705
  Transmission Date: 20161109
  Serious: No
  Sender: FDA-Public Use
  Company Number: None

PATIENT
  Age: 63 Year
  Sex: Female

DRUGS (2)
  1. MEKINIST [Suspect]
     Active Substance: TRAMETINIB DIMETHYL SULFOXIDE
     Indication: MALIGNANT MELANOMA
  2. TAFINLAR [Suspect]
     Active Substance: DABRAFENIB MESYLATE
     Indication: MALIGNANT MELANOMA

REACTIONS (10)
  - Skin cancer [None]
  - Haemorrhage [None]
  - Pyrexia [None]
  - Headache [None]
  - Diarrhoea [None]
  - Rash [None]
  - Sepsis [None]
  - Nausea [None]
  - Skin papilloma [None]
  - Clostridium difficile infection [None]

NARRATIVE: CASE EVENT DATE: 20160701
